FAERS Safety Report 9234265 (Version 1)
Quarter: 2013Q2

REPORT INFORMATION
  Report Type: Report from Study
  Country: BR (occurrence: BR)
  Receive Date: 20130416
  Receipt Date: 20130416
  Transmission Date: 20140414
  Serious: Yes (Other)
  Sender: FDA-Public Use
  Company Number: PHHY2013BR036302

PATIENT
  Sex: Male

DRUGS (1)
  1. NEOTIAPIM [Suspect]
     Indication: DEPRESSION
     Dosage: 1 DF, PER DAY
     Route: 048

REACTIONS (2)
  - Road traffic accident [Recovering/Resolving]
  - Lower limb fracture [Recovering/Resolving]
